FAERS Safety Report 10085155 (Version 1)
Quarter: 2014Q2

REPORT INFORMATION
  Report Type: Spontaneous
  Country: US (occurrence: None)
  Receive Date: 20140410
  Receipt Date: 20140410
  Transmission Date: 20141212
  Serious: Yes (Other)
  Sender: FDA-Public Use
  Company Number: 1504154

PATIENT
  Sex: Female

DRUGS (1)
  1. QUELICIN [Suspect]
     Indication: ENDOTRACHEAL INTUBATION
     Dates: start: 20121116

REACTIONS (1)
  - Drug ineffective [None]
